FAERS Safety Report 18189827 (Version 1)
Quarter: 2020Q3

REPORT INFORMATION
  Report Type: Spontaneous
  Country: US (occurrence: US)
  Receive Date: 20200825
  Receipt Date: 20200825
  Transmission Date: 20201103
  Serious: No
  Sender: FDA-Public Use
  Company Number: US-CELLTRION INC.-2019US025489

PATIENT

DRUGS (2)
  1. INFLECTRA [Suspect]
     Active Substance: INFLIXIMAB-DYYB
     Indication: COLITIS ULCERATIVE
     Dosage: 500MG INFUSION, EVERY 8 WEEKS
     Route: 065
     Dates: start: 201707
  2. INFLECTRA [Suspect]
     Active Substance: INFLIXIMAB-DYYB
     Dosage: PATIENT^S DOSE OF INFLECTRA WAS CHANGED FROM 500MG TO 400MG DUE TO THE PATIENT LOSING WEIGHT
     Route: 065

REACTIONS (3)
  - Overdose [Unknown]
  - Weight decreased [Not Recovered/Not Resolved]
  - Underdose [Unknown]

NARRATIVE: CASE EVENT DATE: 201707
